FAERS Safety Report 24107945 (Version 1)
Quarter: 2024Q3

REPORT INFORMATION
  Report Type: Report from Study
  Country: CA (occurrence: CA)
  Receive Date: 20240718
  Receipt Date: 20240718
  Transmission Date: 20241017
  Serious: Yes (Other)
  Sender: VERITY PHARMACEUTICALS
  Company Number: CA-VER-202400349

PATIENT
  Age: 64 Year
  Sex: Male

DRUGS (2)
  1. TRELSTAR [Suspect]
     Active Substance: TRIPTORELIN PAMOATE
     Indication: Prostate cancer
     Dosage: (11.25 MILLIGRAM(S), 1 IN 3 MONTH), POWDER FOR PROLONGED-RELEASE SUSPENSION FOR INJECT
     Route: 030
     Dates: start: 20240321, end: 20240321
  2. TRELSTAR [Suspect]
     Active Substance: TRIPTORELIN PAMOATE
     Indication: Prostate cancer
     Dosage: (11.25 MILLIGRAM(S), 1 IN 3 MONTH)POWDER FOR PROLONGED-RELEASE SUSPENSION FOR INJECT
     Route: 030
     Dates: start: 20240620, end: 20240620

REACTIONS (4)
  - Testicular pain [Not Recovered/Not Resolved]
  - Erythema [Not Recovered/Not Resolved]
  - Testicular swelling [Not Recovered/Not Resolved]
  - Testicular abscess [Not Recovered/Not Resolved]

NARRATIVE: CASE EVENT DATE: 20240622
